FAERS Safety Report 20966518 (Version 1)
Quarter: 2022Q2

REPORT INFORMATION
  Report Type: Spontaneous
  Country: US (occurrence: None)
  Receive Date: 20220615
  Receipt Date: 20220615
  Transmission Date: 20220721
  Serious: Yes (Hospitalization)
  Sender: FDA-Public Use
  Company Number: None

PATIENT
  Age: 18 Year
  Sex: Male
  Weight: 78.3 kg

DRUGS (10)
  1. EPIDIOLEX [Suspect]
     Active Substance: CANNABIDIOL
     Indication: Epilepsy
     Dosage: OTHER FREQUENCY : IN THE MORNING;?
     Route: 048
     Dates: start: 20220204
  2. EPIDIOLEX [Suspect]
     Active Substance: CANNABIDIOL
     Indication: Epilepsy
     Dosage: OTHER FREQUENCY : AT BEDTIME;?
     Route: 048
     Dates: start: 20220204
  3. CLOBAZAM [Concomitant]
     Active Substance: CLOBAZAM
     Dates: start: 20220223
  4. LACOSAMIDE [Concomitant]
     Active Substance: LACOSAMIDE
     Dates: start: 20220420
  5. LAMOTRIGINE [Concomitant]
     Active Substance: LAMOTRIGINE
     Dates: start: 20220614
  6. MELATONIN [Concomitant]
     Active Substance: MELATONIN
     Dates: start: 20220120
  7. PYRIDOXINE [Concomitant]
     Active Substance: PYRIDOXINE
     Dates: start: 20220518
  8. DIAZEPAM [Concomitant]
     Active Substance: DIAZEPAM
     Dates: start: 20220320
  9. MECLIZINE [Concomitant]
     Active Substance: MECLIZINE HYDROCHLORIDE
     Dates: start: 20220531
  10. PERAMPANEL [Concomitant]
     Active Substance: PERAMPANEL
     Dates: start: 20220531

REACTIONS (1)
  - Seizure [None]

NARRATIVE: CASE EVENT DATE: 20220614
